FAERS Safety Report 21528306 (Version 3)
Quarter: 2022Q4

REPORT INFORMATION
  Report Type: Report from Study
  Country: KR (occurrence: KR)
  Receive Date: 20221031
  Receipt Date: 20221128
  Transmission Date: 20230112
  Serious: Yes (Other)
  Sender: FDA-Public Use
  Company Number: KR-NOVARTISPH-NVSC2022KR183930

PATIENT
  Age: 68 Year
  Sex: Female

DRUGS (17)
  1. KISQALI [Suspect]
     Active Substance: RIBOCICLIB
     Indication: Hormone receptor positive HER2 negative breast cancer
     Dosage: 600 MG, QD
     Route: 048
     Dates: start: 20220707, end: 20220727
  2. KISQALI [Suspect]
     Active Substance: RIBOCICLIB
     Dosage: 600 MG, QD
     Route: 048
     Dates: start: 20220804, end: 20220824
  3. KISQALI [Suspect]
     Active Substance: RIBOCICLIB
     Dosage: 600 MG, QD
     Route: 048
     Dates: start: 20220901, end: 20220921
  4. FEMARA [Concomitant]
     Active Substance: LETROZOLE
     Indication: Breast cancer
     Dosage: 2.5 MG, QD
     Route: 048
     Dates: start: 20220707, end: 20220920
  5. HARNAL [Concomitant]
     Active Substance: TAMSULOSIN HYDROCHLORIDE
     Indication: Prophylaxis
     Dosage: 1 DOSAGE FORM, QD
     Route: 048
     Dates: start: 20221007
  6. RABEPRAZOLE [Concomitant]
     Active Substance: RABEPRAZOLE
     Indication: Prophylaxis
     Dosage: 20 MG, QD
     Route: 048
     Dates: start: 20220929
  7. HEXAMEDINE [Concomitant]
     Indication: Prophylaxis
     Dosage: 90 ML/ 6 TIMES
     Route: 065
     Dates: start: 20221004, end: 20221006
  8. FENTIDERM [Concomitant]
     Indication: Prophylaxis
     Dosage: 12 MCG/HR, 3 DAYS/1 EA
     Route: 061
     Dates: start: 20220929, end: 20221011
  9. DISOLRIN [Concomitant]
     Indication: Pulmonary embolism
     Dosage: 30 MG, QD
     Route: 042
     Dates: start: 20220928, end: 20221003
  10. DISOLRIN [Concomitant]
     Dosage: 15 MG, QD
     Route: 042
     Dates: start: 20221004, end: 20221008
  11. DICAMAX [Concomitant]
     Indication: Prophylaxis
     Dosage: 1 DOSAGE FORM, QD
     Route: 048
     Dates: start: 20221007
  12. OMPS [Concomitant]
     Indication: Prophylaxis
     Dosage: 40 MG, QD
     Route: 048
     Dates: start: 20220707, end: 20220921
  13. CALCIUM CARBONATE\CHOLECALCIFEROL [Concomitant]
     Active Substance: CALCIUM CARBONATE\CHOLECALCIFEROL
     Indication: Prophylaxis
     Dosage: 1 DOSAGE FORM, QD
     Route: 048
     Dates: start: 20220707, end: 20220920
  14. PROLIA [Concomitant]
     Active Substance: DENOSUMAB
     Indication: Prophylaxis
     Dosage: 60 MG, QD
     Route: 058
     Dates: start: 20220721, end: 20220721
  15. METHYLPREDNISOLONE [Concomitant]
     Active Substance: METHYLPREDNISOLONE
     Indication: Pulmonary embolism
     Dosage: 1 DOSAGE FORM, QD
     Route: 048
     Dates: start: 20221009, end: 20221010
  16. PREDNISOLONE [Concomitant]
     Active Substance: PREDNISOLONE
     Indication: Pulmonary embolism
     Dosage: 5 MG, QD
     Route: 048
     Dates: start: 20221011
  17. LASIX [Concomitant]
     Active Substance: FUROSEMIDE
     Indication: Prophylaxis
     Dosage: 0.5 A/DAY
     Route: 065
     Dates: start: 20220921, end: 20220921

REACTIONS (15)
  - Pancytopenia [Recovering/Resolving]
  - Cholangitis [Recovering/Resolving]
  - Pneumonia [Recovering/Resolving]
  - Febrile neutropenia [Recovered/Resolved]
  - Dermatitis bullous [Recovering/Resolving]
  - Anaemia vitamin B6 deficiency [Recovering/Resolving]
  - Platelet count decreased [Recovered/Resolved]
  - Diarrhoea [Recovered/Resolved]
  - Asthenia [Recovering/Resolving]
  - Cystitis [Recovering/Resolving]
  - Hypoalbuminaemia [Recovering/Resolving]
  - Hypophosphataemia [Recovering/Resolving]
  - Hypocalcaemia [Recovering/Resolving]
  - Uterine enlargement [Not Recovered/Not Resolved]
  - Electrocardiogram abnormal [Not Recovered/Not Resolved]

NARRATIVE: CASE EVENT DATE: 20220804
